FAERS Safety Report 10049415 (Version 2)
Quarter: 2014Q2

REPORT INFORMATION
  Report Type: Spontaneous
  Country: DE (occurrence: DE)
  Receive Date: 20140401
  Receipt Date: 20140514
  Transmission Date: 20141212
  Serious: Yes (Hospitalization)
  Sender: FDA-Public Use
  Company Number: DE-JNJFOC-20140316078

PATIENT
  Age: 44 Year
  Sex: Male
  Weight: 76 kg

DRUGS (2)
  1. SIMPONI [Suspect]
     Indication: ANKYLOSING SPONDYLITIS
     Route: 058
     Dates: start: 20130124, end: 201312
  2. ARCOXIA [Concomitant]
     Indication: BACK PAIN
     Dosage: 60-120 MG
     Route: 065
     Dates: start: 201305

REACTIONS (2)
  - Pulmonary tuberculosis [Recovering/Resolving]
  - Therapeutic response decreased [Unknown]
